FAERS Safety Report 9526618 (Version 1)
Quarter: 2013Q3

REPORT INFORMATION
  Report Type: Spontaneous
  Country: PK (occurrence: PK)
  Receive Date: 20130916
  Receipt Date: 20130916
  Transmission Date: 20140515
  Serious: Yes (Other)
  Sender: FDA-Public Use
  Company Number: PHHY2013PK100088

PATIENT
  Sex: Female

DRUGS (3)
  1. PREDNISOLONE [Suspect]
     Dosage: 2 MG/KG, BODY WEIGHT/DAY
  2. PROPRANOLOL [Concomitant]
     Dosage: 1 MG/KG, BODY WEIGHT
     Route: 048
  3. PROPRANOLOL [Concomitant]
     Dosage: 4.5 MG/KG, BODY WEIGHT/DAY

REACTIONS (7)
  - Abdominal discomfort [Unknown]
  - Swelling [Unknown]
  - Polydipsia [Unknown]
  - Polyuria [Unknown]
  - Hyperphagia [Unknown]
  - Weight increased [Unknown]
  - Rash [Unknown]
